FAERS Safety Report 17989515 (Version 1)
Quarter: 2020Q3

REPORT INFORMATION
  Report Type: Spontaneous
  Country: US (occurrence: US)
  Receive Date: 20200707
  Receipt Date: 20200707
  Transmission Date: 20201103
  Serious: Yes (Hospitalization)
  Sender: FDA-Public Use
  Company Number: US-MYLANLABS-2020M1061449

PATIENT
  Age: 69 Year
  Sex: Female
  Weight: 65.3 kg

DRUGS (1)
  1. MINOCYCLINE [Suspect]
     Active Substance: MINOCYCLINE HYDROCHLORIDE
     Indication: ARTHRALGIA
     Route: 065

REACTIONS (3)
  - Cardiovascular disorder [Recovered/Resolved]
  - Off label use [Recovered/Resolved]
  - Ochronosis [Recovered/Resolved]
